FAERS Safety Report 7465722-7 (Version None)
Quarter: 2011Q2

REPORT INFORMATION
  Report Type: 
  Country: None (occurrence: None)
  Receive Date: 20110509
  Receipt Date: 20110502
  Transmission Date: 20111010
  Serious: Yes (Life-Threatening)
  Sender: FDA-Public Use
  Company Number: B0717834A

PATIENT
  Sex: Male

DRUGS (9)
  1. MORPHINE [Suspect]
     Dosage: 3MG PER DAY
     Route: 042
     Dates: start: 20110301, end: 20110301
  2. DIPRIVAN [Suspect]
     Dosage: 20MG PER DAY
     Route: 042
     Dates: start: 20110301, end: 20110301
  3. TORADOL [Suspect]
     Dosage: 30MG PER DAY
     Route: 042
     Dates: start: 20110301, end: 20110301
  4. TRANEXAMIC ACID [Suspect]
     Indication: HAEMORRHAGE PROPHYLAXIS
     Dosage: .5MG PER DAY
     Route: 042
     Dates: start: 20110301, end: 20110301
  5. NORCURON [Suspect]
     Dosage: 8MG PER DAY
     Route: 042
     Dates: start: 20110301, end: 20110301
  6. FENTANYL CITRATE [Suspect]
     Dosage: .6MG PER DAY
     Route: 042
     Dates: start: 20110301, end: 20110301
  7. MEFOXIN [Suspect]
     Indication: ANTIBIOTIC PROPHYLAXIS
     Route: 042
     Dates: start: 20110301, end: 20110301
  8. ZOFRAN [Suspect]
     Indication: VOMITING
     Dosage: 4MG PER DAY
     Route: 042
     Dates: start: 20110301, end: 20110301
  9. LIDOCAINE HYDROCHLORIDE [Suspect]
     Dosage: 200MG PER DAY
     Route: 042
     Dates: start: 20110301, end: 20110301

REACTIONS (1)
  - LARYNGEAL OEDEMA [None]
